FAERS Safety Report 21997919 (Version 1)
Quarter: 2023Q1

REPORT INFORMATION
  Report Type: Spontaneous
  Country: US (occurrence: US)
  Receive Date: 20230216
  Receipt Date: 20230216
  Transmission Date: 20230417
  Serious: No
  Sender: FDA-Public Use
  Company Number: US-GSK-US2023019799

PATIENT
  Sex: Female

DRUGS (1)
  1. FLOVENT HFA [Suspect]
     Active Substance: FLUTICASONE PROPIONATE
     Indication: Respiratory syncytial virus infection
     Dosage: 3 PUFF(S), BID, 44MCG
     Dates: start: 202301

REACTIONS (2)
  - Product use issue [Unknown]
  - Product prescribing error [Unknown]
